FAERS Safety Report 9374332 (Version 1)
Quarter: 2013Q3

REPORT INFORMATION
  Report Type: Spontaneous
  Country: US (occurrence: None)
  Receive Date: 20130627
  Receipt Date: 20130627
  Transmission Date: 20140515
  Serious: Yes (Hospitalization)
  Sender: FDA-Public Use
  Company Number: None

PATIENT
  Age: 55 Year
  Sex: Female
  Weight: 85 kg

DRUGS (4)
  1. NULOJIX [Suspect]
     Indication: RENAL TRANSPLANT
     Route: 042
     Dates: start: 20130605
  2. CELLCEPT [Suspect]
     Indication: RENAL TRANSPLANT
  3. ALEMTUZUMAB INDUCTION [Concomitant]
  4. PREDNISONE TAPER [Concomitant]

REACTIONS (10)
  - Abdominal pain lower [None]
  - Abscess [None]
  - Culture wound positive [None]
  - Streptococcus test positive [None]
  - Acinetobacter test positive [None]
  - Deep vein thrombosis [None]
  - Kidney fibrosis [None]
  - Renal tubular atrophy [None]
  - Renal tubular necrosis [None]
  - Renal artery arteriosclerosis [None]
